FAERS Safety Report 10085608 (Version 1)
Quarter: 2014Q2

REPORT INFORMATION
  Report Type: Report from Study
  Country: CA (occurrence: CA)
  Receive Date: 20140418
  Receipt Date: 20140418
  Transmission Date: 20141212
  Serious: Yes (Death)
  Sender: FDA-Public Use
  Company Number: CA-ABBVIE-14K-028-1227479-00

PATIENT
  Sex: Male
  Weight: 86.26 kg

DRUGS (1)
  1. LUPRON DEPOT [Suspect]
     Indication: PROSTATE CANCER
     Route: 030
     Dates: start: 20130812, end: 20130812

REACTIONS (1)
  - Death [Fatal]
